FAERS Safety Report 7105698-5 (Version None)
Quarter: 2010Q4

REPORT INFORMATION
  Report Type: 
  Country: None (occurrence: None)
  Receive Date: 20101116
  Receipt Date: 20101104
  Transmission Date: 20110411
  Serious: Yes (Hospitalization)
  Sender: FDA-Public Use
  Company Number: PHHO2010AU16701

PATIENT
  Sex: Male

DRUGS (6)
  1. BLINDED AEB071 AEB+GELCAP+PGR [Suspect]
     Indication: RENAL TRANSPLANT
     Dosage: CODE NOT BROKEN
     Route: 048
     Dates: start: 20100715
  2. BLINDED ERL 080A ERL+TAB [Suspect]
     Indication: RENAL TRANSPLANT
     Dosage: CODE NOT BROKEN
     Route: 048
     Dates: start: 20100715
  3. BLINDED NO TREATMENT RECEIVED NOMED [Suspect]
     Indication: RENAL TRANSPLANT
     Dosage: CODE NOT BROKEN
     Route: 048
     Dates: start: 20100715
  4. SIMULECT [Suspect]
     Indication: RENAL TRANSPLANT
     Route: 042
  5. TACROLIMUS [Suspect]
     Indication: RENAL TRANSPLANT
     Route: 048
  6. CORTICOSTEROIDS [Suspect]
     Indication: RENAL TRANSPLANT
     Route: 048

REACTIONS (5)
  - GAIT DISTURBANCE [None]
  - HYPOKINESIA [None]
  - IMPAIRED HEALING [None]
  - NECROSIS [None]
  - WOUND SECRETION [None]
